FAERS Safety Report 10241671 (Version 2)
Quarter: 2014Q2

REPORT INFORMATION
  Report Type: Spontaneous
  Country: AR (occurrence: AR)
  Receive Date: 20140617
  Receipt Date: 20140617
  Transmission Date: 20141212
  Serious: Yes (Other)
  Sender: FDA-Public Use
  Company Number: AR-PFIZER INC-2014129030

PATIENT
  Age: 50 Year
  Sex: Female
  Weight: 71 kg

DRUGS (11)
  1. XELJANZ [Suspect]
     Indication: RHEUMATOID ARTHRITIS
     Dosage: 5 MG, 1X/DAY
     Dates: start: 201311, end: 20131126
  2. XELJANZ [Suspect]
     Dosage: 5 MG, 2X/DAY
     Dates: start: 20131127, end: 20140426
  3. XELJANZ [Suspect]
     Dosage: 15 MG, 10MG MORNING / 5MG NIGHT
     Dates: start: 20140427
  4. MEPREDNISONE [Concomitant]
     Dosage: 8 MG, 1X/DAY
  5. NAPROXEN [Concomitant]
     Dosage: 500 MG, 1X/DAY
  6. LEVOTHYROXINE [Concomitant]
     Dosage: 100 UG, 1X/DAY
  7. PAUSAFREN T [Concomitant]
     Dosage: ONCE DAILY
  8. VALSARTAN [Concomitant]
     Dosage: 160 MG, 1X/DAY
  9. HYDROCHLOROTHIAZIDE [Concomitant]
     Dosage: 12.5 MG, 1X/DAY
  10. BISOPROLOL [Concomitant]
     Dosage: 5 MG, 1X/DAY
  11. OMEPRAZOL [Concomitant]
     Dosage: 20 MG, 1X/DAY

REACTIONS (3)
  - Polyarthritis [Recovering/Resolving]
  - Arthralgia [Recovering/Resolving]
  - Drug ineffective [Unknown]
